FAERS Safety Report 7225415-8 (Version None)
Quarter: 2011Q1

REPORT INFORMATION
  Report Type: 
  Country: None (occurrence: None)
  Receive Date: 20110113
  Receipt Date: 20100928
  Transmission Date: 20110831
  Serious: No
  Sender: FDA-Public Use
  Company Number: US-NOVEN-10US001385

PATIENT
  Sex: Female

DRUGS (9)
  1. XANAX [Concomitant]
     Indication: NERVOUSNESS
     Dosage: .25 MG, BID
     Route: 048
  2. NEXIUM [Concomitant]
     Indication: ULCER
     Dosage: 1 DF, QD
     Route: 048
  3. CELEXA [Concomitant]
     Indication: DEPRESSION
     Dosage: 20 MG, QD
     Route: 048
  4. RESTORIL [Concomitant]
     Indication: DEPRESSION
     Dosage: 1 DF, DAILY, PRN
     Route: 048
  5. PREMARIN [Concomitant]
     Indication: HORMONE REPLACEMENT THERAPY
     Dosage: 1 DF, QD
  6. PROMETHAZINE [Concomitant]
     Indication: NAUSEA
     Dosage: 25 MG, DAILY AND PRN
     Route: 048
  7. FENTANYL-100 [Suspect]
     Indication: BACK PAIN
     Dosage: 25 UG/HR Q 3DAYS
     Route: 062
     Dates: start: 20080101
  8. XANAX [Concomitant]
     Indication: DEPRESSION
  9. LORTAB [Concomitant]
     Indication: BACK PAIN
     Dosage: UNK, TID
     Route: 048

REACTIONS (5)
  - CRYING [None]
  - THINKING ABNORMAL [None]
  - NERVOUSNESS [None]
  - HEADACHE [None]
  - TREMOR [None]
